FAERS Safety Report 8114072-4 (Version None)
Quarter: 2012Q1

REPORT INFORMATION
  Report Type: 
  Country: None (occurrence: None)
  Receive Date: 20120203
  Receipt Date: 20120125
  Transmission Date: 20120608
  Serious: Yes (Other)
  Sender: FDA-Public Use
  Company Number: CA-ASTRAZENECA-2012SE05264

PATIENT
  Age: 78 Year
  Sex: Female

DRUGS (8)
  1. ATACAND HCT [Suspect]
     Dosage: 16/12.5 ONCE A DAY
     Route: 048
     Dates: start: 20101201
  2. METOPROLOL [Concomitant]
  3. FUROSEMIDE [Concomitant]
  4. OMEPRAZOLE [Concomitant]
  5. AMILOZIDE [Concomitant]
  6. ATACAND [Suspect]
     Route: 048
     Dates: start: 20110101
  7. INSULIN [Concomitant]
  8. ACETAMINOPHEN [Concomitant]
     Dosage: AS REQUIRED
     Route: 048

REACTIONS (4)
  - RETINAL HAEMORRHAGE [None]
  - MICTURITION URGENCY [None]
  - DIABETES MELLITUS INADEQUATE CONTROL [None]
  - VISUAL ACUITY REDUCED [None]
